FAERS Safety Report 7948373 (Version 3)
Quarter: 2013Q1

REPORT INFORMATION
  Report Type: Spontaneous
  Country: US (occurrence: US)
  Receive Date: 20110517
  Receipt Date: 20130320
  Transmission Date: 20140127
  Serious: Yes (Other)
  Sender: FDA-Public Use
  Company Number: US-BAYER-2010-008437

PATIENT
  Age: 18 Year
  Sex: Female
  Weight: 49.89 kg

DRUGS (15)
  1. YASMIN [Suspect]
     Indication: CONTRACEPTION
     Dosage: UNK
     Dates: start: 200705, end: 200806
  2. OCELLA [Suspect]
     Indication: CONTRACEPTION
     Dosage: UNK
     Dates: start: 200806, end: 20091218
  3. SINGULAIR [Concomitant]
     Indication: ASTHMA
     Dosage: UNK
     Dates: start: 20050815
  4. ALBUTEROL [Concomitant]
     Indication: ASTHMA
     Dosage: UNK
     Dates: start: 2004
  5. IBUPROFEN [Concomitant]
     Dosage: UNK UNK, PRN
  6. NEXIUM [Concomitant]
     Indication: GASTROOESOPHAGEAL REFLUX DISEASE
     Dosage: UNK
     Dates: start: 2006
  7. NEXIUM [Concomitant]
     Indication: GASTROOESOPHAGEAL REFLUX DISEASE
  8. MULTIVITAMIN [Concomitant]
     Indication: VITAMIN SUPPLEMENTATION
     Dosage: UNK
     Dates: start: 2008
  9. LAMICTAL [Concomitant]
     Indication: BENIGN INTRACRANIAL HYPERTENSION
  10. LAMICTAL [Concomitant]
     Indication: HEADACHE
  11. METHAZOLAMIDE [Concomitant]
     Indication: BENIGN INTRACRANIAL HYPERTENSION
  12. METHAZOLAMIDE [Concomitant]
     Indication: HEADACHE
  13. NASACORT [Concomitant]
  14. AUGMENTIN [Concomitant]
     Dosage: 875 MG, BID
  15. CETIRIZIN [Concomitant]
     Dosage: 10 MG, DAILY

REACTIONS (8)
  - Cholecystitis chronic [None]
  - Gallbladder disorder [Recovered/Resolved]
  - Abdominal pain [Recovered/Resolved]
  - Gallbladder pain [Recovered/Resolved]
  - Anxiety [None]
  - Post cholecystectomy syndrome [None]
  - Injury [Recovered/Resolved]
  - Emotional distress [None]
